FAERS Safety Report 8821514 (Version 1)
Quarter: 2012Q4

REPORT INFORMATION
  Report Type: 
  Country: BR (occurrence: BR)
  Receive Date: 20121002
  Receipt Date: 20121002
  Transmission Date: 20130627
  Serious: Yes (Other)
  Sender: FDA-Public Use
  Company Number: BR-PFIZER INC-2012238859

PATIENT
  Age: 78 Year
  Sex: Female

DRUGS (1)
  1. AROMASIN [Suspect]

REACTIONS (2)
  - Breast cancer [Unknown]
  - Pulmonary mass [Unknown]
